FAERS Safety Report 26209402 (Version 1)
Quarter: 2025Q4

REPORT INFORMATION
  Report Type: Spontaneous
  Country: US (occurrence: US)
  Receive Date: 20251229
  Receipt Date: 20251229
  Transmission Date: 20260118
  Serious: Yes (Death)
  Sender: MALLINCKRODT
  Company Number: US-MALLINCKRODT-MNK202508118

PATIENT
  Age: 69 Year
  Sex: Female

DRUGS (1)
  1. CORTICOTROPIN [Suspect]
     Active Substance: CORTICOTROPIN
     Indication: Corneal disorder
     Dosage: 80 UNITS
     Route: 058
     Dates: start: 202502

REACTIONS (1)
  - Death [Fatal]
